FAERS Safety Report 9008682 (Version 1)
Quarter: 2013Q1

REPORT INFORMATION
  Report Type: Spontaneous
  Country: US (occurrence: US)
  Receive Date: 20130111
  Receipt Date: 20130111
  Transmission Date: 20140127
  Serious: Yes (Other)
  Sender: FDA-Public Use
  Company Number: US-ELI_LILLY_AND_COMPANY-US201301003133

PATIENT
  Sex: Male

DRUGS (4)
  1. EFFIENT [Suspect]
     Indication: STENT PLACEMENT
     Dosage: 10 MG, QD
     Route: 048
     Dates: start: 2010
  2. EFFIENT [Suspect]
     Dosage: 10 MG, QOD
     Route: 048
  3. EFFIENT [Suspect]
     Dosage: 10 MG, QD
     Route: 048
  4. EFFIENT [Suspect]
     Dosage: 5 MG, QOD

REACTIONS (5)
  - Ventricular tachycardia [Unknown]
  - Epistaxis [Unknown]
  - Haemorrhage [Unknown]
  - Excoriation [Unknown]
  - Intentional drug misuse [Unknown]
